FAERS Safety Report 8252411-4 (Version None)
Quarter: 2012Q2

REPORT INFORMATION
  Report Type: 
  Country: None (occurrence: None)
  Receive Date: 20120402
  Receipt Date: 20110705
  Transmission Date: 20120825
  Serious: No
  Sender: FDA-Public Use
  Company Number: US-ABBOTT-11P-163-0836058-00

PATIENT
  Sex: Male
  Weight: 71.278 kg

DRUGS (8)
  1. ACCUPRIL [Concomitant]
     Indication: HYPERTENSION
  2. FISH OIL [Concomitant]
     Indication: VITAMIN SUPPLEMENTATION
  3. ANDROGEL [Suspect]
     Indication: BLOOD TESTOSTERONE DECREASED
     Dosage: 4 PUMPS DAILY
     Dates: start: 20110301, end: 20110501
  4. LITHIUM CARBONATE [Concomitant]
     Indication: BIPOLAR DISORDER
  5. VITAMIN D [Concomitant]
     Indication: VITAMIN SUPPLEMENTATION
  6. CALCIUM CARBONATE [Concomitant]
     Indication: MINERAL SUPPLEMENTATION
  7. ANDROGEL [Suspect]
     Dosage: 6 PUMPS DAILY
     Dates: start: 20110605
  8. MULTI-VITAMIN [Concomitant]
     Indication: VITAMIN SUPPLEMENTATION

REACTIONS (2)
  - BLOOD TESTOSTERONE DECREASED [None]
  - DRUG DOSE OMISSION [None]
